FAERS Safety Report 23359928 (Version 1)
Quarter: 2024Q1

REPORT INFORMATION
  Report Type: Report from Study
  Country: US (occurrence: US)
  Receive Date: 20240103
  Receipt Date: 20240103
  Transmission Date: 20240409
  Serious: No
  Sender: FDA-Public Use
  Company Number: US-BIOVITRUM-2023-US-021353

PATIENT
  Age: 20 Month
  Sex: Male

DRUGS (2)
  1. SYNAGIS [Suspect]
     Active Substance: PALIVIZUMAB
     Indication: Chronic respiratory disease
     Dosage: 15 MG/KG, ONCE A MONTH?100MG/ML
     Route: 030
     Dates: start: 202209
  2. SYNAGIS [Suspect]
     Active Substance: PALIVIZUMAB
     Dosage: 15 MG/KG, ONCE A MONTH?50MG/0.5ML
     Route: 030
     Dates: start: 202209

REACTIONS (2)
  - Pyrexia [Unknown]
  - Product dose omission issue [Unknown]
